FAERS Safety Report 10985548 (Version 3)
Quarter: 2017Q2

REPORT INFORMATION
  Report Type: Spontaneous
  Country: US (occurrence: US)
  Receive Date: 20150404
  Receipt Date: 20170413
  Transmission Date: 20170829
  Serious: No
  Sender: FDA-Public Use
  Company Number: US-SA-2014SA150953

PATIENT

DRUGS (1)
  1. ALLEGRA-D 24 HOUR [Suspect]
     Active Substance: FEXOFENADINE HYDROCHLORIDE\PSEUDOEPHEDRINE HYDROCHLORIDE
     Route: 048

REACTIONS (8)
  - Sleep disorder [Unknown]
  - Thirst [Unknown]
  - Blepharospasm [Unknown]
  - Fatigue [Unknown]
  - Palpitations [Unknown]
  - Heart rate increased [Unknown]
  - Condition aggravated [Unknown]
  - Drug dose omission [Unknown]
